FAERS Safety Report 10989329 (Version 6)
Quarter: 2015Q4

REPORT INFORMATION
  Report Type: Spontaneous
  Country: US (occurrence: US)
  Receive Date: 20150406
  Receipt Date: 20151223
  Transmission Date: 20160304
  Serious: Yes (Other)
  Sender: FDA-Public Use
  Company Number: US-PFIZER INC-2015114027

PATIENT
  Age: 82 Year
  Sex: Female
  Weight: 67 kg

DRUGS (16)
  1. SUTENT [Suspect]
     Active Substance: SUNITINIB MALATE
     Indication: METASTATIC RENAL CELL CARCINOMA
     Dosage: 50 MG, CYCLIC
     Dates: start: 2012
  2. HYDRALAZINE [Concomitant]
     Active Substance: HYDRALAZINE HYDROCHLORIDE
     Dosage: 50 MG, DAILY
  3. METOPROLOL [Concomitant]
     Active Substance: METOPROLOL
     Dosage: UNK
  4. INLYTA [Concomitant]
     Active Substance: AXITINIB
     Dosage: 5 MG, 2X/DAY
     Route: 048
  5. ATORVASTATIN [Concomitant]
     Active Substance: ATORVASTATIN
     Dosage: UNK
  6. LIPITOR [Concomitant]
     Active Substance: ATORVASTATIN CALCIUM
     Dosage: 80 MG, DAILY
  7. SUTENT [Suspect]
     Active Substance: SUNITINIB MALATE
     Dosage: 12.5 MG, 1X/DAY, CYCLIC
  8. ZETIA [Concomitant]
     Active Substance: EZETIMIBE
     Dosage: 10 MG, DAILY
  9. RENVELA [Concomitant]
     Active Substance: SEVELAMER CARBONATE
     Dosage: 800 MG, DAILY
  10. SUTENT [Suspect]
     Active Substance: SUNITINIB MALATE
     Dosage: 25 MG, CYCLIC (DAILY FOR 28 DAYS ON AND 14 DAYS OFF)
     Dates: start: 201209
  11. EFFEXOR [Concomitant]
     Active Substance: VENLAFAXINE HYDROCHLORIDE
     Dosage: 75 MG, 2X/DAY
  12. TOPROL XL [Concomitant]
     Active Substance: METOPROLOL SUCCINATE
     Dosage: 12.5 MG, 2X/DAY
  13. NORVASC [Concomitant]
     Active Substance: AMLODIPINE BESYLATE
     Dosage: UNK, DAILY
  14. LEVOTHYROXINE. [Concomitant]
     Active Substance: LEVOTHYROXINE
     Dosage: 2X/DAY
  15. ECOTRIN [Concomitant]
     Active Substance: ASPIRIN
     Dosage: 81 MG, DAILY
  16. INLYTA [Concomitant]
     Active Substance: AXITINIB
     Dosage: 3 MG, 2X/DAY

REACTIONS (33)
  - Nocturia [Unknown]
  - Disturbance in attention [Unknown]
  - Increased tendency to bruise [Unknown]
  - Hyperhidrosis [Unknown]
  - Renal impairment [Unknown]
  - Radius fracture [Unknown]
  - Decreased appetite [Unknown]
  - Neck pain [Unknown]
  - Weight decreased [Unknown]
  - Ecchymosis [Unknown]
  - Renal cell carcinoma [Not Recovered/Not Resolved]
  - Faeces discoloured [Unknown]
  - Pain [Unknown]
  - Vomiting [Unknown]
  - Paraesthesia [Unknown]
  - Fall [Unknown]
  - Haemorrhage [Unknown]
  - Oedema [Unknown]
  - Oral disorder [Unknown]
  - Malaise [Unknown]
  - Asthenia [Unknown]
  - Fatigue [Unknown]
  - Somnolence [Unknown]
  - Ageusia [Unknown]
  - Disease progression [Not Recovered/Not Resolved]
  - Headache [Unknown]
  - Cough [Unknown]
  - Skin disorder [Unknown]
  - Dizziness [Unknown]
  - Constipation [Unknown]
  - Nausea [Unknown]
  - Diarrhoea [Unknown]
  - Pollakiuria [Unknown]
